FAERS Safety Report 15464041 (Version 1)
Quarter: 2018Q4

REPORT INFORMATION
  Report Type: Spontaneous
  Country: GB (occurrence: GB)
  Receive Date: 20181004
  Receipt Date: 20181004
  Transmission Date: 20190204
  Serious: Yes (Other)
  Sender: FDA-Public Use
  Company Number: GB-GLAXOSMITHKLINE-GB2018176721

PATIENT
  Age: 61 Year
  Sex: Male
  Weight: 89 kg

DRUGS (9)
  1. ATORVASTATIN [Concomitant]
     Active Substance: ATORVASTATIN
     Indication: PRODUCT USED FOR UNKNOWN INDICATION
     Dosage: 10 MG, QD
     Route: 065
     Dates: start: 20180627
  2. RELVAR ELLIPTA [Suspect]
     Active Substance: FLUTICASONE FUROATE\VILANTEROL TRIFENATATE
     Indication: PRODUCT USED FOR UNKNOWN INDICATION
     Dosage: 184MCG/22MCG
     Route: 055
     Dates: start: 20180627
  3. TERBUTALINE [Concomitant]
     Active Substance: TERBUTALINE
     Indication: PRODUCT USED FOR UNKNOWN INDICATION
     Dosage: UP TO 4 TIMES A DAY ; AS NECESSARY
     Route: 055
     Dates: start: 20180627
  4. OMEPRAZOLE. [Concomitant]
     Active Substance: OMEPRAZOLE
     Indication: PRODUCT USED FOR UNKNOWN INDICATION
     Dosage: 20 MG, QD
     Route: 065
     Dates: start: 20180627
  5. FOLIC ACID. [Concomitant]
     Active Substance: FOLIC ACID
     Indication: PRODUCT USED FOR UNKNOWN INDICATION
     Dosage: 5 MG, QD
     Route: 065
     Dates: start: 20180627
  6. MST CONTINUS [Concomitant]
     Active Substance: MORPHINE SULFATE
     Indication: PRODUCT USED FOR UNKNOWN INDICATION
     Dosage: 10 MG, QD
     Route: 065
     Dates: start: 20180627
  7. BETAHISTINE [Concomitant]
     Active Substance: BETAHISTINE
     Indication: VERTIGO
     Dosage: 24 MG, QD
     Route: 065
     Dates: start: 20180627
  8. FLUOXETINE [Concomitant]
     Active Substance: FLUOXETINE HYDROCHLORIDE
     Indication: PRODUCT USED FOR UNKNOWN INDICATION
     Dosage: 40 MG, QD
     Route: 065
     Dates: start: 20180627
  9. TRUSOPT [Concomitant]
     Active Substance: DORZOLAMIDE HYDROCHLORIDE
     Indication: PRODUCT USED FOR UNKNOWN INDICATION
     Dosage: TO LEFT EYE, 20MG/ML
     Route: 047
     Dates: start: 20180627, end: 20180703

REACTIONS (1)
  - Oral discomfort [Recovered/Resolved]
